FAERS Safety Report 5376308-2 (Version None)
Quarter: 2007Q2

REPORT INFORMATION
  Report Type: 
  Country: None (occurrence: None)
  Receive Date: 20070628
  Receipt Date: 20070619
  Transmission Date: 20071010
  Serious: Yes (Hospitalization)
  Sender: FDA-Public Use
  Company Number: 2007AL002510

PATIENT
  Age: 70 Year
  Sex: Female

DRUGS (4)
  1. CARBAMAZEPINE [Suspect]
     Dosage: 500 MG; QD; PO
     Route: 048
  2. ALPRAZOLAM [Concomitant]
  3. DIAZEPAM [Concomitant]
  4. MELPERON [Concomitant]

REACTIONS (10)
  - ALANINE AMINOTRANSFERASE INCREASED [None]
  - ANXIETY [None]
  - DELIRIUM [None]
  - DISORIENTATION [None]
  - HEPATIC ENZYME INCREASED [None]
  - HYPERTENSION [None]
  - IRRITABILITY [None]
  - MOOD SWINGS [None]
  - PANIC ATTACK [None]
  - TACHYCARDIA [None]
